FAERS Safety Report 4765867-6 (Version None)
Quarter: 2005Q3

REPORT INFORMATION
  Report Type: 
  Country: None (occurrence: None)
  Receive Date: 20050907
  Receipt Date: 20050902
  Transmission Date: 20060218
  Serious: Yes (Life-Threatening)
  Sender: FDA-Public Use
  Company Number: 2005-132114-NL

PATIENT
  Age: 71 Year
  Sex: Male

DRUGS (3)
  1. ROCURONIUM BROMIDE [Suspect]
     Indication: SENSORY DISTURBANCE
     Dosage: 70 MG
     Dates: start: 20050706, end: 20050706
  2. MIDAZOLAM [Suspect]
     Indication: SENSORY DISTURBANCE
     Dosage: 7.5 MG
     Dates: start: 20050706, end: 20050706
  3. PROPOFOL [Suspect]
     Indication: SENSORY DISTURBANCE
     Dosage: 90 MG
     Dates: start: 20050706, end: 20050706

REACTIONS (5)
  - CARDIAC ARREST [None]
  - FLUSHING [None]
  - HYPOTENSION [None]
  - VENTRICULAR FIBRILLATION [None]
  - VENTRICULAR TACHYCARDIA [None]
